FAERS Safety Report 11214318 (Version 1)
Quarter: 2015Q2

REPORT INFORMATION
  Report Type: Other
  Country: IT (occurrence: IT)
  Receive Date: 20150624
  Receipt Date: 20150624
  Transmission Date: 20150821
  Serious: Yes (Death)
  Sender: FDA-Public Use
  Company Number: IT-LUPIN PHARMACEUTICALS INC.-2015-01006

PATIENT
  Age: 30 Year
  Sex: Male

DRUGS (3)
  1. CIPROFLOXACIN. [Suspect]
     Active Substance: CIPROFLOXACIN
     Indication: BACK PAIN
  2. CIPROFLOXACIN. [Suspect]
     Active Substance: CIPROFLOXACIN
     Indication: URINARY TRACT INFECTION
     Dosage: 1 GRAM
     Route: 065
  3. CIPROFLOXACIN. [Suspect]
     Active Substance: CIPROFLOXACIN
     Indication: HAEMATURIA

REACTIONS (2)
  - Thrombocytopenia [Fatal]
  - Haemolytic anaemia [Fatal]
